FAERS Safety Report 21990262 (Version 1)
Quarter: 2023Q1

REPORT INFORMATION
  Report Type: Spontaneous
  Country: US (occurrence: US)
  Receive Date: 20230214
  Receipt Date: 20230214
  Transmission Date: 20230417
  Serious: No
  Sender: FDA-Public Use
  Company Number: US-ELI_LILLY_AND_COMPANY-US202302005369

PATIENT

DRUGS (3)
  1. TRULICITY [Suspect]
     Active Substance: DULAGLUTIDE
     Indication: Glucose tolerance impaired
     Dosage: 0.75 MG, UNKNOWN
     Route: 065
     Dates: start: 20230129
  2. TRULICITY [Suspect]
     Active Substance: DULAGLUTIDE
     Indication: Blood cholesterol increased
  3. IBUPROFEN [Concomitant]
     Active Substance: IBUPROFEN
     Indication: Pain

REACTIONS (4)
  - Nausea [Unknown]
  - Headache [Unknown]
  - Palpitations [Unknown]
  - Off label use [Unknown]
